FAERS Safety Report 8723768 (Version 2)
Quarter: 2012Q4

REPORT INFORMATION
  Report Type: 
  Country: GB (occurrence: GB)
  Receive Date: 20120815
  Receipt Date: 20120907
  Transmission Date: 20130627
  Serious: No
  Sender: FDA-Public Use
  Company Number: GB-AMGEN-GBRSP2012050392

PATIENT
  Age: 66 Year
  Sex: Male

DRUGS (1)
  1. ENBREL [Suspect]
     Indication: PSORIATIC ARTHROPATHY
     Dosage: 50 mg, weekly
     Route: 058
     Dates: start: 200904

REACTIONS (4)
  - Musculoskeletal stiffness [Unknown]
  - Eyelid function disorder [Unknown]
  - Emotional distress [Unknown]
  - Feeling drunk [Unknown]
